FAERS Safety Report 7964190-6 (Version None)
Quarter: 2011Q4

REPORT INFORMATION
  Report Type: 
  Country: None (occurrence: None)
  Receive Date: 20111121
  Receipt Date: 20110729
  Transmission Date: 20120403
  Serious: No
  Sender: FDA-Public Use
  Company Number: 1000022559

PATIENT
  Age: 39 Year
  Sex: Female

DRUGS (2)
  1. VIIBRYD [Suspect]
     Indication: DEPRESSION
     Dosage: 10 MG (10 MG, 1 IN 1 D),ORAL, 20 MG (10 MG, 1 IN 1 D),ORAL
     Route: 048
     Dates: start: 20110721, end: 20110727
  2. VIIBRYD [Suspect]
     Indication: DEPRESSION
     Dosage: 10 MG (10 MG, 1 IN 1 D),ORAL, 20 MG (10 MG, 1 IN 1 D),ORAL
     Route: 048
     Dates: start: 20110728

REACTIONS (3)
  - HEADACHE [None]
  - NAUSEA [None]
  - VOMITING [None]
